FAERS Safety Report 17902371 (Version 3)
Quarter: 2021Q2

REPORT INFORMATION
  Report Type: Other
  Country: DE (occurrence: DE)
  Receive Date: 20200617
  Receipt Date: 20210412
  Transmission Date: 20210717
  Serious: No
  Sender: FDA-Public Use
  Company Number: DE-ROCHE-2408412

PATIENT
  Age: 58 Year
  Sex: Female
  Weight: 69 kg

DRUGS (9)
  1. PARACETAMOL [Concomitant]
     Active Substance: ACETAMINOPHEN
     Route: 041
     Dates: start: 20180611, end: 20180625
  2. TAVEGIL [Concomitant]
     Active Substance: CLEMASTINE FUMARATE
     Route: 040
     Dates: start: 20180611, end: 20180625
  3. METHYLPREDNISOLONE. [Concomitant]
     Active Substance: METHYLPREDNISOLONE
     Route: 041
     Dates: start: 20180611, end: 20180625
  4. PARACETAMOL [Concomitant]
     Active Substance: ACETAMINOPHEN
     Indication: PREMEDICATION
     Dosage: PREMEDICATION FOR THE PROPHYLAXIS OF INFUSION?RELATED REACTIONS
     Route: 040
     Dates: start: 20181217
  5. OCRELIZUMAB. [Suspect]
     Active Substance: OCRELIZUMAB
     Indication: RELAPSING MULTIPLE SCLEROSIS
     Route: 042
     Dates: start: 20180611, end: 20180625
  6. FAMPYRA [Concomitant]
     Active Substance: DALFAMPRIDINE
     Dosage: IMPROVEMENT OF THE WALKING ABILITY
     Route: 048
     Dates: start: 2016
  7. OCRELIZUMAB. [Suspect]
     Active Substance: OCRELIZUMAB
     Route: 042
     Dates: start: 20181217
  8. TAVEGIL [Concomitant]
     Active Substance: CLEMASTINE FUMARATE
     Indication: PREMEDICATION
     Dosage: PREMEDICATION FOR THE PROPHYLAXIS OF INFUSION?RELATED REACTIONS
     Route: 040
     Dates: start: 20181217
  9. METHYLPREDNISOLONE. [Concomitant]
     Active Substance: METHYLPREDNISOLONE
     Indication: PROPHYLAXIS
     Route: 040
     Dates: start: 20181217

REACTIONS (2)
  - Urinary tract infection [Recovered/Resolved]
  - Urinary tract infection [Recovered/Resolved]

NARRATIVE: CASE EVENT DATE: 20190618
